FAERS Safety Report 21160781 (Version 1)
Quarter: 2022Q3

REPORT INFORMATION
  Report Type: Spontaneous
  Country: US (occurrence: US)
  Receive Date: 20220802
  Receipt Date: 20220802
  Transmission Date: 20221027
  Serious: No
  Sender: FDA-Public Use
  Company Number: US-PUMA BIOTECHNOLOGY, LTD.-2022-PUM-US000071

PATIENT

DRUGS (2)
  1. NERLYNX [Suspect]
     Active Substance: NERATINIB
     Indication: HER2 positive breast cancer
     Dosage: UNK
     Route: 048
     Dates: start: 202104, end: 2021
  2. NERLYNX [Suspect]
     Active Substance: NERATINIB
     Dosage: 240 MG, DAILY
     Route: 048
     Dates: start: 2021, end: 20211130

REACTIONS (5)
  - Pain in extremity [Unknown]
  - Blood potassium decreased [Unknown]
  - Diarrhoea [Unknown]
  - Muscle spasms [Unknown]
  - Drug titration [Unknown]

NARRATIVE: CASE EVENT DATE: 20210101
